FAERS Safety Report 15153574 (Version 1)
Quarter: 2018Q3

REPORT INFORMATION
  Report Type: Spontaneous
  Country: US (occurrence: US)
  Receive Date: 20180717
  Receipt Date: 20180717
  Transmission Date: 20181010
  Serious: No
  Sender: FDA-Public Use
  Company Number: US-BAUSCH-BL-2018-018730

PATIENT
  Age: 43 Year
  Sex: Female

DRUGS (2)
  1. ZYCLARA [Suspect]
     Active Substance: IMIQUIMOD
     Indication: PRECANCEROUS CELLS PRESENT
     Route: 061
     Dates: start: 20180618, end: 201806
  2. ZYCLARA [Suspect]
     Active Substance: IMIQUIMOD
     Route: 061
     Dates: start: 201806, end: 20180701

REACTIONS (3)
  - Paraesthesia [Not Recovered/Not Resolved]
  - Oral mucosal blistering [Not Recovered/Not Resolved]
  - Feeling hot [Not Recovered/Not Resolved]

NARRATIVE: CASE EVENT DATE: 201806
